FAERS Safety Report 7492820-4 (Version None)
Quarter: 2011Q2

REPORT INFORMATION
  Report Type: 
  Country: None (occurrence: None)
  Receive Date: 20110512
  Receipt Date: 20110503
  Transmission Date: 20111010
  Serious: Yes (Other)
  Sender: FDA-Public Use
  Company Number: B0717739A

PATIENT
  Sex: Female

DRUGS (2)
  1. TOPOTECAN HYDROCHLORIDE [Suspect]
     Indication: NEOPLASM MALIGNANT
     Dosage: 3.2 MG/M2 CYCLIC, INTRAVENOUS
     Route: 042
  2. LAPATINIB [Suspect]
     Indication: NEOPLASM MALIGNANT
     Dosage: 1250 MG, CYCLIC, ORAL
     Route: 048

REACTIONS (5)
  - OVARIAN CANCER [None]
  - MALIGNANT PERITONEAL NEOPLASM [None]
  - NEOPLASM PROGRESSION [None]
  - THROMBOCYTOPENIA [None]
  - NEUTROPENIA [None]
